FAERS Safety Report 5391335-7 (Version None)
Quarter: 2007Q3

REPORT INFORMATION
  Report Type: 
  Country: None (occurrence: None)
  Receive Date: 20070719
  Receipt Date: 20070716
  Transmission Date: 20080115
  Serious: Yes (Other)
  Sender: FDA-Public Use
  Company Number: D0054000A

PATIENT
  Age: 70 Year
  Sex: Male

DRUGS (2)
  1. LAMICTAL [Suspect]
     Route: 048
  2. SEROQUEL [Suspect]
     Route: 048

REACTIONS (9)
  - BLOOD PRESSURE DECREASED [None]
  - COUGH [None]
  - INCREASED UPPER AIRWAY SECRETION [None]
  - PALLOR [None]
  - PERIPHERAL COLDNESS [None]
  - PSORIASIS [None]
  - SALIVARY HYPERSECRETION [None]
  - TONGUE DISORDER [None]
  - URINARY INCONTINENCE [None]
